FAERS Safety Report 11583136 (Version 1)
Quarter: 2015Q4

REPORT INFORMATION
  Report Type: Spontaneous
  Country: US (occurrence: US)
  Receive Date: 20151001
  Receipt Date: 20151001
  Transmission Date: 20160304
  Serious: No
  Sender: FDA-Public Use
  Company Number: US-ROCHE-679276

PATIENT
  Sex: Female

DRUGS (3)
  1. COPEGUS [Suspect]
     Active Substance: RIBAVIRIN
     Indication: HEPATITIS C
     Dosage: DIVIDED DOSES
     Route: 065
  2. PEGASYS [Suspect]
     Active Substance: PEGINTERFERON ALFA-2A
     Indication: HEPATITIS C
     Dosage: FORM:PRE FILLED SYRINGE
     Route: 065
  3. COPEGUS [Suspect]
     Active Substance: RIBAVIRIN
     Dosage: DIVIDED DOSES, WEEK 15 OF THERAPY
     Route: 065

REACTIONS (5)
  - Cellulitis [Unknown]
  - Nausea [Unknown]
  - Alopecia [Recovering/Resolving]
  - Sinusitis [Unknown]
  - Decreased appetite [Recovering/Resolving]
